FAERS Safety Report 9886024 (Version 1)
Quarter: 2013Q4

REPORT INFORMATION
  Report Type: Spontaneous
  Country: US (occurrence: None)
  Receive Date: 20131223
  Receipt Date: 20131223
  Transmission Date: 20140711
  Serious: Yes (Other)
  Sender: FDA-Public Use
  Company Number: 217659LEO

PATIENT
  Age: 55 Year
  Sex: Female

DRUGS (2)
  1. PICATO (0.015 %, GEL) [Suspect]
     Indication: ACTINIC KERATOSIS
     Dosage: ON ENTIRE FOREHEAD
     Dates: start: 20120511, end: 20120513
  2. PICATO (0.015 %, GEL) [Suspect]
     Indication: PRODUCT USED FOR UNKNOWN INDICATION
     Dosage: ON ENTIRE FOREHEAD
     Dates: start: 20120511, end: 20120513

REACTIONS (5)
  - Drug administration error [None]
  - Inappropriate schedule of drug administration [None]
  - Application site erythema [None]
  - Application site vesicles [None]
  - Application site exfoliation [None]
